FAERS Safety Report 8993414 (Version 1)
Quarter: 2013Q1

REPORT INFORMATION
  Report Type: Spontaneous
  Country: US (occurrence: US)
  Receive Date: 20130102
  Receipt Date: 20130102
  Transmission Date: 20140127
  Serious: No
  Sender: FDA-Public Use
  Company Number: US-PFIZER INC-2012330932

PATIENT
  Age: 42 Year
  Sex: Female
  Weight: 90.7 kg

DRUGS (1)
  1. ADVIL MIGRAINE [Suspect]
     Indication: MIGRAINE
     Dosage: 200 MG, UNK
     Route: 048
     Dates: start: 2012

REACTIONS (2)
  - Circumstance or information capable of leading to medication error [Unknown]
  - Oropharyngeal pain [Unknown]
